FAERS Safety Report 4934455-0 (Version None)
Quarter: 2006Q1

REPORT INFORMATION
  Report Type: 
  Country: None (occurrence: None)
  Receive Date: 20060303
  Receipt Date: 20060223
  Transmission Date: 20060701
  Serious: Yes (Hospitalization, Disabling)
  Sender: FDA-Public Use
  Company Number: 238563

PATIENT
  Age: 14 Year
  Sex: Female
  Weight: 66.2 kg

DRUGS (2)
  1. ACCUTANE [Suspect]
     Indication: ACNE
     Dosage: 60 MG DAILY 2 PER DAY ORAL
     Route: 048
     Dates: start: 20000215, end: 20000609
  2. ORTHO TRI-CYCLEN [Concomitant]

REACTIONS (24)
  - ANAEMIA [None]
  - BLOOD CHOLESTEROL INCREASED [None]
  - COLITIS [None]
  - COLITIS ULCERATIVE [None]
  - DISEASE RECURRENCE [None]
  - DRY SKIN [None]
  - EMOTIONAL DISORDER [None]
  - GASTROINTESTINAL DISORDER [None]
  - HEADACHE [None]
  - INFLAMMATORY BOWEL DISEASE [None]
  - INFLUENZA LIKE ILLNESS [None]
  - INTESTINAL HAEMORRHAGE [None]
  - LIP DRY [None]
  - MENORRHAGIA [None]
  - MENTAL DISORDER [None]
  - MICTURITION URGENCY [None]
  - MULTI-ORGAN DISORDER [None]
  - OTITIS MEDIA [None]
  - PAIN [None]
  - PITYRIASIS ROSEA [None]
  - PROCTITIS ULCERATIVE [None]
  - TINEA VERSICOLOUR [None]
  - WEIGHT DECREASED [None]
  - WEIGHT INCREASED [None]
